FAERS Safety Report 8833114 (Version 3)
Quarter: 2012Q4

REPORT INFORMATION
  Report Type: Report from Study
  Country: FR (occurrence: FR)
  Receive Date: 20121010
  Receipt Date: 20121106
  Transmission Date: 20130627
  Serious: Yes (Hospitalization)
  Sender: FDA-Public Use
  Company Number: FR-009507513-1210FRA003127

PATIENT
  Age: 6 Year
  Sex: Female

DRUGS (2)
  1. TEMODAL [Suspect]
     Indication: NEOPLASM
     Dosage: 114.3 mg, qd
     Route: 048
     Dates: start: 20120919, end: 20120923
  2. HYCAMTIN [Suspect]
     Indication: NEOPLASM
     Dosage: 0.570 mg, qd
     Route: 042
     Dates: start: 20120919, end: 20120923

REACTIONS (2)
  - Febrile bone marrow aplasia [Not Recovered/Not Resolved]
  - Pyrexia [Not Recovered/Not Resolved]
